FAERS Safety Report 8957785 (Version 2)
Quarter: 2013Q1

REPORT INFORMATION
  Report Type: Spontaneous
  Country: DE (occurrence: DE)
  Receive Date: 20121211
  Receipt Date: 20130124
  Transmission Date: 20140127
  Serious: Yes (Other)
  Sender: FDA-Public Use
  Company Number: DE-ROCHE-1166844

PATIENT
  Age: 75 Year
  Sex: Male

DRUGS (4)
  1. MABTHERA [Suspect]
     Indication: MONOCLONAL GAMMOPATHY
     Route: 042
     Dates: start: 20121205, end: 20121205
  2. FENISTIL [Concomitant]
     Route: 042
     Dates: start: 20121205, end: 20121205
  3. RANITIDINE [Concomitant]
     Route: 042
     Dates: start: 20121205, end: 20121205
  4. PARACETAMOL [Concomitant]
     Route: 065
     Dates: start: 20121205, end: 20121205

REACTIONS (3)
  - Circulatory collapse [Recovering/Resolving]
  - Chills [Unknown]
  - Nausea [Unknown]
